FAERS Safety Report 6751887-9 (Version None)
Quarter: 2010Q2

REPORT INFORMATION
  Report Type: 
  Country: None (occurrence: None)
  Receive Date: 20100602
  Receipt Date: 20100525
  Transmission Date: 20101027
  Serious: Yes (Disabling, Other)
  Sender: FDA-Public Use
  Company Number: GB-ASTRAZENECA-2010SE23880

PATIENT
  Age: 86 Year
  Sex: Male
  Weight: 81 kg

DRUGS (7)
  1. ZOLADEX [Suspect]
     Indication: PROSTATE CANCER
     Route: 058
     Dates: start: 20070821, end: 20080722
  2. ALLOPURINOL [Concomitant]
     Indication: GOUT
     Route: 048
  3. ASPIRIN [Concomitant]
     Indication: CARDIAC FAILURE CONGESTIVE
     Route: 048
  4. DIGOXIN [Concomitant]
     Indication: CARDIAC FAILURE CONGESTIVE
     Route: 048
  5. DILTIAZEM [Concomitant]
     Indication: CARDIAC FAILURE CONGESTIVE
     Route: 048
  6. DILTIAZEM [Concomitant]
     Indication: ATRIAL FIBRILLATION
     Route: 048
  7. FUROSEMIDE [Concomitant]
     Indication: CARDIAC FAILURE CONGESTIVE
     Route: 048

REACTIONS (1)
  - HAEMATOMA [None]
